FAERS Safety Report 8982388 (Version 1)
Quarter: 2012Q4

REPORT INFORMATION
  Report Type: 
  Country: US (occurrence: US)
  Receive Date: 20121212
  Receipt Date: 20121212
  Transmission Date: 20130627
  Serious: Yes (Other)
  Sender: FDA-Public Use
  Company Number: US-ASTELLAS-1113967

PATIENT
  Age: 63 Year
  Sex: Female

DRUGS (2)
  1. TARCEVA [Suspect]
     Indication: MALIGNANT RESPIRATORY TRACT NEOPLASM
     Route: 048
     Dates: start: 20070730, end: 20120130
  2. TARCEVA [Suspect]
     Indication: METASTASES TO NERVOUS SYSTEM

REACTIONS (5)
  - Metastases to the mediastinum [Unknown]
  - Rash [Recovered/Resolved]
  - Dehydration [Unknown]
  - Diarrhoea [Unknown]
  - Vomiting [Unknown]
